FAERS Safety Report 5213247-1 (Version None)
Quarter: 2007Q1

REPORT INFORMATION
  Report Type: 
  Country: None (occurrence: None)
  Receive Date: 20070111
  Receipt Date: 20070104
  Transmission Date: 20070707
  Serious: Yes (Hospitalization)
  Sender: FDA-Public Use
  Company Number: 163-21880-06120151

PATIENT
  Age: 73 Year
  Sex: Male

DRUGS (2)
  1. REVLIMID [Suspect]
     Indication: MULTIPLE MYELOMA
     Dosage: 25 MG, QD X 21 DAYS, ORAL; SEE IMAGE
     Route: 048
     Dates: start: 20060815, end: 20060801
  2. REVLIMID [Suspect]
     Indication: MULTIPLE MYELOMA
     Dosage: 25 MG, QD X 21 DAYS, ORAL; SEE IMAGE
     Route: 048
     Dates: start: 20061204

REACTIONS (7)
  - ANORECTAL INFECTION [None]
  - CATHETER RELATED INFECTION [None]
  - ENTEROCOCCAL SEPSIS [None]
  - FATIGUE [None]
  - GROIN INFECTION [None]
  - SUBACUTE ENDOCARDITIS [None]
  - WEIGHT DECREASED [None]
